FAERS Safety Report 9833212 (Version 6)
Quarter: 2014Q2

REPORT INFORMATION
  Report Type: Spontaneous
  Country: US (occurrence: US)
  Receive Date: 20140121
  Receipt Date: 20140519
  Transmission Date: 20141212
  Serious: No
  Sender: FDA-Public Use
  Company Number: US-GILEAD-2014-0092598

PATIENT
  Sex: Female

DRUGS (3)
  1. LETAIRIS [Suspect]
     Indication: PULMONARY ARTERIAL HYPERTENSION
     Dosage: 10 MG, QD
     Route: 065
     Dates: start: 20110331
  2. VENTAVIS [Suspect]
     Dosage: UNK
     Route: 065
  3. TYVASO [Concomitant]

REACTIONS (7)
  - Malaise [Not Recovered/Not Resolved]
  - Ulcer [Not Recovered/Not Resolved]
  - Unevaluable event [Not Recovered/Not Resolved]
  - Headache [Not Recovered/Not Resolved]
  - Asthenia [Unknown]
  - Fatigue [Unknown]
  - Abdominal pain upper [Not Recovered/Not Resolved]
